FAERS Safety Report 12789767 (Version 2)
Quarter: 2016Q3

REPORT INFORMATION
  Report Type: Report from Study
  Country: DE (occurrence: DE)
  Receive Date: 20160928
  Receipt Date: 20160930
  Transmission Date: 20161109
  Serious: Yes (Other)
  Sender: FDA-Public Use
  Company Number: DE-INCYTE CORPORATION-2016IN006041

PATIENT
  Age: 68 Year
  Sex: Male
  Weight: 89 kg

DRUGS (7)
  1. CANDESARTAN [Concomitant]
     Active Substance: CANDESARTAN
     Dosage: 20 MG, QD
     Route: 065
  2. ALLOPURINOL. [Concomitant]
     Active Substance: ALLOPURINOL
     Dosage: 300 MG, QD
     Route: 065
  3. CANDESARTAN [Concomitant]
     Active Substance: CANDESARTAN
     Dosage: 20 MG, QD
     Route: 065
  4. ALLOPURINOL. [Concomitant]
     Active Substance: ALLOPURINOL
     Indication: BLOOD URIC ACID INCREASED
     Dosage: 300 MG, QD
     Route: 065
  5. CANDESARTAN [Concomitant]
     Active Substance: CANDESARTAN
     Indication: HYPERTENSION
     Dosage: 20 MG, QD
     Route: 065
  6. ALLOPURINOL. [Concomitant]
     Active Substance: ALLOPURINOL
     Dosage: 300 MG, QD
     Route: 065
  7. INCB018424 [Suspect]
     Active Substance: RUXOLITINIB
     Indication: PRIMARY MYELOFIBROSIS
     Dosage: 40 MG, QD
     Route: 048
     Dates: start: 20140501

REACTIONS (5)
  - Monocyte count increased [Unknown]
  - Basophil count increased [Not Recovered/Not Resolved]
  - Blood chloride decreased [Recovered/Resolved]
  - Concomitant disease aggravated [Unknown]
  - Blood sodium decreased [Recovered/Resolved]

NARRATIVE: CASE EVENT DATE: 20140716
